FAERS Safety Report 6415564-6 (Version None)
Quarter: 2009Q4

REPORT INFORMATION
  Report Type: 
  Country: None (occurrence: None)
  Receive Date: 20091027
  Receipt Date: 20091022
  Transmission Date: 20100525
  Serious: Yes (Hospitalization, Other)
  Sender: FDA-Public Use
  Company Number: GB-BRISTOL-MYERS SQUIBB COMPANY-14828404

PATIENT
  Age: 36 Year
  Sex: Male

DRUGS (1)
  1. SUSTIVA [Suspect]
     Dates: start: 20090401, end: 20090101

REACTIONS (3)
  - HALLUCINATION, AUDITORY [None]
  - PARANOIA [None]
  - RENAL FAILURE [None]
